APPROVED DRUG PRODUCT: PRAVACHOL
Active Ingredient: PRAVASTATIN SODIUM
Strength: 80MG **Federal Register determination that product was not discontinued or withdrawn for safety or effectiveness reasons**
Dosage Form/Route: TABLET;ORAL
Application: N019898 | Product #008
Applicant: BRISTOL MYERS SQUIBB
Approved: Dec 18, 2001 | RLD: Yes | RS: No | Type: DISCN